FAERS Safety Report 5146418-3 (Version None)
Quarter: 2006Q4

REPORT INFORMATION
  Report Type: 
  Country: None (occurrence: None)
  Receive Date: 20061102
  Receipt Date: 20061020
  Transmission Date: 20070319
  Serious: Yes (Hospitalization, Other)
  Sender: FDA-Public Use
  Company Number: 2006130212

PATIENT
  Age: 43 Year
  Sex: Male
  Weight: 90.7194 kg

DRUGS (3)
  1. CELEBREX [Suspect]
     Indication: ARTHRITIS
     Dosage: 200 MG
     Dates: start: 20030101, end: 20060925
  2. OXYCONTIN [Concomitant]
  3. LYRICA [Concomitant]

REACTIONS (3)
  - ANGINA PECTORIS [None]
  - ISCHAEMIA [None]
  - OSTEOARTHRITIS [None]
